FAERS Safety Report 19518425 (Version 1)
Quarter: 2021Q3

REPORT INFORMATION
  Report Type: Spontaneous
  Country: US (occurrence: US)
  Receive Date: 20210709
  Receipt Date: 20210709
  Transmission Date: 20211014
  Serious: Yes (Hospitalization)
  Sender: FDA-Public Use
  Company Number: None

PATIENT
  Age: 75 Year
  Sex: Female

DRUGS (18)
  1. FAMOTIDINE 20MG TAB [Concomitant]
     Dates: start: 20210703
  2. MYRBETRIQ ER 25MG TAB [Concomitant]
     Dates: start: 20210424
  3. IBUPROFEN 800MG TAB [Concomitant]
     Dates: start: 20210119
  4. HYDROCHLOROTHIAZIDE 25MG TAB [Concomitant]
     Active Substance: HYDROCHLOROTHIAZIDE
     Dates: start: 20210223
  5. MONTELUKAST [Concomitant]
     Active Substance: MONTELUKAST SODIUM
     Dates: start: 20210221
  6. ROSUVASTATIN 10MG TAB [Concomitant]
     Dates: start: 20210223
  7. ROPINIROLE 2MG TAB [Concomitant]
     Dates: start: 20210105
  8. ESCITALOPRAM 10MG TAB [Concomitant]
     Dates: start: 20210107
  9. SUCRALFATE 1GM TAB [Concomitant]
     Dates: start: 20210625
  10. LINZESS [Suspect]
     Active Substance: LINACLOTIDE
     Route: 048
     Dates: start: 20210702, end: 20210702
  11. PANTOPRAZOLE 40MG TAB [Concomitant]
     Dates: start: 20210105
  12. LEVOTHYROXINE 100MCG TAB [Concomitant]
     Dates: start: 20210113
  13. HYDROXYZINE [Concomitant]
     Active Substance: HYDROXYZINE HYDROCHLORIDE
     Dates: start: 20210207
  14. TOLTERODINE ER 4MG [Concomitant]
     Dates: start: 20210525
  15. CARVEDILOL 12.5MG TAB [Concomitant]
     Dates: start: 20210309
  16. OXYCODONE 15MG TAB [Concomitant]
     Dates: start: 20210122
  17. METHOCARBAMOL 500MG TAB [Concomitant]
     Dates: start: 20210128
  18. LOSARTAN 100MG TAB [Concomitant]
     Active Substance: LOSARTAN
     Dates: start: 20210223

REACTIONS (3)
  - Pruritus [None]
  - Lip swelling [None]
  - Peripheral swelling [None]

NARRATIVE: CASE EVENT DATE: 20210702
